FAERS Safety Report 20870933 (Version 5)
Quarter: 2023Q4

REPORT INFORMATION
  Report Type: Report from Study
  Country: JP (occurrence: JP)
  Receive Date: 20220525
  Receipt Date: 20231114
  Transmission Date: 20240110
  Serious: Yes (Hospitalization, Other)
  Sender: FDA-Public Use
  Company Number: JP-ASTELLAS-2022JP007483

PATIENT
  Age: 65 Year
  Sex: Male
  Weight: 55.6 kg

DRUGS (8)
  1. ENFORTUMAB VEDOTIN [Suspect]
     Active Substance: ENFORTUMAB VEDOTIN
     Indication: Transitional cell carcinoma
     Route: 041
     Dates: start: 20220112, end: 20220126
  2. ENFORTUMAB VEDOTIN [Suspect]
     Active Substance: ENFORTUMAB VEDOTIN
     Dosage: 1.0 MG/KG, UNKNOWN FREQ.
     Route: 041
     Dates: start: 20220222, end: 20220308
  3. ENFORTUMAB VEDOTIN [Suspect]
     Active Substance: ENFORTUMAB VEDOTIN
     Dosage: 1.0 MG/KG, UNKNOWN FREQ.
     Route: 041
     Dates: start: 20220329, end: 20220426
  4. ENFORTUMAB VEDOTIN [Suspect]
     Active Substance: ENFORTUMAB VEDOTIN
     Dosage: 1.0 MG/KG, UNKNOWN FREQ.
     Route: 041
     Dates: start: 20220510, end: 20220510
  5. ENFORTUMAB VEDOTIN [Suspect]
     Active Substance: ENFORTUMAB VEDOTIN
     Dosage: 0.75 MG/KG, ONCE WEEKLY, REPEAT DOSING FOR 3 CONSECUTIVE WEEKS, WITH A BREAK IN WEEK 4, AS A CYCLE
     Route: 041
     Dates: start: 20220830, end: 20221206
  6. ENFORTUMAB VEDOTIN [Suspect]
     Active Substance: ENFORTUMAB VEDOTIN
     Dosage: UNK UNK, UNKNOWN FREQ.
     Route: 041
     Dates: start: 20230110, end: 202303
  7. ENFORTUMAB VEDOTIN [Suspect]
     Active Substance: ENFORTUMAB VEDOTIN
     Dosage: UNK UNK, UNKNOWN FREQ.
     Route: 041
  8. DIFLUPREDNATE [Concomitant]
     Active Substance: DIFLUPREDNATE
     Indication: Rash
     Dosage: 10 G, AS NEEDED
     Route: 065
     Dates: start: 20220126, end: 20220126

REACTIONS (6)
  - Interstitial lung disease [Recovered/Resolved]
  - Neutrophil count decreased [Recovered/Resolved]
  - Neutrophil count decreased [Recovered/Resolved]
  - Rash [Recovering/Resolving]
  - Inappropriate schedule of product administration [Unknown]
  - Inappropriate schedule of product administration [Unknown]

NARRATIVE: CASE EVENT DATE: 20220126
